FAERS Safety Report 8073233-3 (Version None)
Quarter: 2011Q4

REPORT INFORMATION
  Report Type: 
  Country: None (occurrence: None)
  Receive Date: 20111221
  Receipt Date: 20110413
  Transmission Date: 20120403
  Serious: Yes (Other)
  Sender: FDA-Public Use
  Company Number: PHHY2011US24664

PATIENT
  Age: 89 Year
  Sex: Female
  Weight: 63.5 kg

DRUGS (1)
  1. DEFERASIROX [Suspect]
     Indication: SICKLE CELL ANAEMIA
     Dosage: 1000 MG, DAILY, ORAL
     Route: 048
     Dates: start: 20100301

REACTIONS (4)
  - THROMBOCYTOPENIA [None]
  - VOMITING [None]
  - PLATELET COUNT DECREASED [None]
  - DIARRHOEA [None]
